FAERS Safety Report 16625073 (Version 2)
Quarter: 2019Q3

REPORT INFORMATION
  Report Type: Spontaneous
  Country: US (occurrence: US)
  Receive Date: 20190724
  Receipt Date: 20190726
  Transmission Date: 20191004
  Serious: Yes (Other)
  Sender: FDA-Public Use
  Company Number: US-PFIZER INC-2019310223

PATIENT
  Age: 29 Year
  Sex: Female

DRUGS (5)
  1. OXALIPLATIN. [Suspect]
     Active Substance: OXALIPLATIN
     Indication: ADENOCARCINOMA
     Dosage: UNK, CYCLIC (THREE MORE DOSES)
     Dates: start: 200208
  2. 5-FU [FLUOROURACIL] [Concomitant]
     Active Substance: FLUOROURACIL
     Indication: ADENOCARCINOMA
     Dosage: UNK, CYCLIC
     Dates: start: 200208
  3. CETUXIMAB. [Concomitant]
     Active Substance: CETUXIMAB
     Indication: ADENOCARCINOMA
     Dosage: UNK, CYCLIC
     Dates: start: 2002
  4. IRINOTECAN [Concomitant]
     Active Substance: IRINOTECAN
     Indication: ADENOCARCINOMA
     Dosage: UNK, CYCLIC
     Dates: start: 2002
  5. LEUCOVORIN [FOLINIC ACID] [Concomitant]
     Active Substance: LEUCOVORIN
     Indication: ADENOCARCINOMA
     Dosage: UNK, CYCLIC
     Dates: start: 200208

REACTIONS (3)
  - Blindness [Recovered/Resolved]
  - Neutropenia [Unknown]
  - Fatigue [Unknown]

NARRATIVE: CASE EVENT DATE: 2002
